FAERS Safety Report 9011963 (Version 1)
Quarter: 2013Q1

REPORT INFORMATION
  Report Type: Spontaneous
  Country: US (occurrence: US)
  Receive Date: 20130114
  Receipt Date: 20130114
  Transmission Date: 20140127
  Serious: Yes (Death, Hospitalization, Other)
  Sender: FDA-Public Use
  Company Number: US-UCBSA-074782

PATIENT
  Age: 64 Year
  Sex: Female

DRUGS (20)
  1. PANTOPRAZOLE SODIUM [Suspect]
     Route: 048
  2. ACETAMINOPHEN\HYDROCODONE [Suspect]
     Route: 048
  3. DESIPRAMINE [Suspect]
     Route: 048
  4. DILTIAZEM [Suspect]
     Dosage: EXTENDED RELEASE
     Route: 048
  5. VENLAFAXINE [Suspect]
     Route: 048
  6. LAMOTRIGINE [Suspect]
     Route: 048
  7. HYDROCHLOROTHIAZIDE [Suspect]
     Route: 048
  8. ARMODAFINIL [Suspect]
     Route: 048
  9. POTASSIUM CHLORIDE [Suspect]
     Route: 048
  10. TRIFLUOPERAZINE [Suspect]
     Route: 048
  11. ESCITALOPRAM [Suspect]
     Route: 048
  12. LANSOPRAZOLE [Suspect]
     Route: 048
  13. ROVUSTATIN [Suspect]
     Route: 048
  14. NAPROXEN [Suspect]
     Route: 048
  15. NITROFURANTOIN [Suspect]
     Route: 048
  16. DICLOFENAC [Suspect]
     Route: 048
  17. ACETAMINOPHEN/PROPOXYPHENE [Suspect]
     Route: 048
  18. SOLIFENACIN [Suspect]
     Route: 048
  19. CIPROFLOXACIN [Suspect]
     Route: 048
  20. PROGESTINE [Suspect]
     Route: 048

REACTIONS (1)
  - Completed suicide [Fatal]
